FAERS Safety Report 23090777 (Version 5)
Quarter: 2024Q3

REPORT INFORMATION
  Report Type: Spontaneous
  Country: CA (occurrence: CA)
  Receive Date: 20231020
  Receipt Date: 20240801
  Transmission Date: 20241017
  Serious: Yes (Hospitalization, Other)
  Sender: SANDOZ
  Company Number: CA-SANDOZ-SDZ2023CA043701

PATIENT
  Age: 53 Year
  Sex: Female

DRUGS (43)
  1. ASCORBIC ACID [Suspect]
     Active Substance: ASCORBIC ACID
     Indication: Product used for unknown indication
     Dosage: 15 MG, BID
     Route: 048
  2. ASCORBIC ACID [Suspect]
     Active Substance: ASCORBIC ACID
     Dosage: UNK UNK,
     Route: 048
  3. AMINO ACIDS [Suspect]
     Active Substance: AMINO ACIDS
     Indication: Product used for unknown indication
     Dosage: 2 DF, BID
     Route: 048
  4. .ALPHA.-TOCOPHEROL, D- [Suspect]
     Active Substance: .ALPHA.-TOCOPHEROL, D-
     Indication: Product used for unknown indication
     Dosage: 7.5 MG
     Route: 048
  5. VENLAFAXINE HYDROCHLORIDE [Suspect]
     Active Substance: VENLAFAXINE HYDROCHLORIDE
     Indication: Product used for unknown indication
     Route: 065
  6. BIFIDOBACTERIUM LONGUM [Suspect]
     Active Substance: BIFIDOBACTERIUM LONGUM
     Indication: Product used for unknown indication
     Dosage: 1 DF, TID
     Route: 048
  7. BUDESONIDE\FORMOTEROL FUMARATE [Suspect]
     Active Substance: BUDESONIDE\FORMOTEROL FUMARATE
     Dosage: 2 MG, BID
     Route: 065
  8. BUDESONIDE\FORMOTEROL FUMARATE [Suspect]
     Active Substance: BUDESONIDE\FORMOTEROL FUMARATE
     Dosage: 200 MG, BID
     Route: 065
  9. BUDESONIDE\FORMOTEROL FUMARATE [Suspect]
     Active Substance: BUDESONIDE\FORMOTEROL FUMARATE
     Indication: Product used for unknown indication
     Dosage: 6 MG, BID
     Route: 065
  10. BUDESONIDE\FORMOTEROL FUMARATE [Suspect]
     Active Substance: BUDESONIDE\FORMOTEROL FUMARATE
     Dosage: 1 DF, BID
     Route: 065
  11. BUDESONIDE\FORMOTEROL FUMARATE [Suspect]
     Active Substance: BUDESONIDE\FORMOTEROL FUMARATE
     Dosage: 1 DF, BID
     Route: 065
  12. DOCONEXENT [Suspect]
     Active Substance: DOCONEXENT
     Indication: Product used for unknown indication
     Dosage: 120 MG, BID,2 EVERY 1 DAYS
     Route: 048
  13. DOCONEXENT [Suspect]
     Active Substance: DOCONEXENT
     Dosage: UNK
     Route: 065
  14. ERGOCALCIFEROL [Suspect]
     Active Substance: ERGOCALCIFEROL
     Indication: Product used for unknown indication
     Dosage: 1000 IU, QD
     Route: 048
  15. ESTRADIOL [Suspect]
     Active Substance: ESTRADIOL
     Indication: Product used for unknown indication
     Dosage: 50 UG, QD,1 EVERY 1 DAYS
     Route: 062
  16. ESTRADIOL [Suspect]
     Active Substance: ESTRADIOL
     Dosage: 1 UNK
     Route: 062
  17. ICOSAPENT [Suspect]
     Active Substance: ICOSAPENT
     Indication: Product used for unknown indication
     Dosage: 180 MG, BID
     Route: 048
  18. ICOSAPENT [Suspect]
     Active Substance: ICOSAPENT
     Dosage: UNK
     Route: 048
  19. FISH OIL [Suspect]
     Active Substance: FISH OIL
     Indication: Product used for unknown indication
     Dosage: UNK, BID,2 EVERY 1 DAYS (600 EPA/300 DHA)
     Route: 048
  20. LORAZEPAM [Suspect]
     Active Substance: LORAZEPAM
     Indication: Product used for unknown indication
     Dosage: 1 MG, QD
     Route: 048
  21. LORAZEPAM [Suspect]
     Active Substance: LORAZEPAM
     Dosage: 1 MG, QD
     Route: 065
  22. LACTOBACILLUS ACIDOPHILUS [Suspect]
     Active Substance: LACTOBACILLUS ACIDOPHILUS
     Dosage: UNK
     Route: 048
  23. LACTOBACILLUS ACIDOPHILUS [Suspect]
     Active Substance: LACTOBACILLUS ACIDOPHILUS
     Indication: Product used for unknown indication
     Dosage: UNK, TID
     Route: 048
  24. LACTOBACILLUS CASEI [Suspect]
     Active Substance: LACTOBACILLUS CASEI
     Indication: Product used for unknown indication
     Dosage: 1 DF, TID
     Route: 048
  25. LACTOBACILLUS RHAMNOSUS [Suspect]
     Active Substance: LACTOBACILLUS RHAMNOSUS
     Indication: Product used for unknown indication
     Dosage: 1 DF, TID
     Route: 048
  26. LINOLEIC ACID [Suspect]
     Active Substance: LINOLEIC ACID
     Indication: Product used for unknown indication
     Dosage: 1 DF, TID
     Route: 048
  27. LINOLEIC ACID [Suspect]
     Active Substance: LINOLEIC ACID
     Dosage: UNK
     Route: 048
  28. DIMETHYL SULFONE [Suspect]
     Active Substance: DIMETHYL SULFONE
     Indication: Product used for unknown indication
     Dosage: 1000 MG, TID
     Route: 065
  29. OMEGA-3 ACIDS [Suspect]
     Active Substance: OMEGA-3 FATTY ACIDS
     Indication: Product used for unknown indication
     Dosage: UNK, BID (TRIPLE STRENGTH)
     Route: 048
  30. PROGESTERONE [Suspect]
     Active Substance: PROGESTERONE
     Indication: Product used for unknown indication
     Dosage: 100 MG, QD
     Route: 065
  31. PROGESTERONE [Suspect]
     Active Substance: PROGESTERONE
     Dosage: 100 MG
     Route: 065
  32. PROGESTERONE [Suspect]
     Active Substance: PROGESTERONE
     Dosage: UNK
     Route: 065
  33. SOMATROPIN [Suspect]
     Active Substance: SOMATROPIN
     Indication: Product used for unknown indication
     Dosage: UNK
     Route: 065
  34. THIOCTIC ACID [Suspect]
     Active Substance: THIOCTIC ACID
     Indication: Product used for unknown indication
     Dosage: 3.75 MG, QD
     Route: 065
  35. UBIDECARENONE [Suspect]
     Active Substance: UBIDECARENONE
     Indication: Product used for unknown indication
     Dosage: 3.75 MG
     Route: 065
  36. UBIDECARENONE [Suspect]
     Active Substance: UBIDECARENONE
     Dosage: UNK
     Route: 048
  37. VENLAFAXINE [Suspect]
     Active Substance: VENLAFAXINE HYDROCHLORIDE
     Indication: Product used for unknown indication
     Dosage: 150 MG, 1 EVERY 1 DAYS
     Route: 065
  38. VARENICLINE [Suspect]
     Active Substance: VARENICLINE
     Dosage: 0.5 MG, QD
     Route: 065
  39. VARENICLINE [Suspect]
     Active Substance: VARENICLINE
     Indication: Product used for unknown indication
     Dosage: 1 MG, BID
     Route: 065
  40. VARENICLINE [Suspect]
     Active Substance: VARENICLINE
     Dosage: 150 MG
     Route: 065
  41. VITAMIN A [Suspect]
     Active Substance: VITAMIN A
     Indication: Product used for unknown indication
     Dosage: 188 MG, BID,2 EVERY 1 DAYS
     Route: 048
  42. VITAMIN C [Suspect]
     Active Substance: ASCORBIC ACID
     Indication: Product used for unknown indication
     Dosage: 15 MG, BID
     Route: 048
  43. VITAMIN D [Suspect]
     Active Substance: VITAMIN D NOS
     Indication: Product used for unknown indication
     Dosage: 1000 IU, QD (1 EVERY 1 DAYS)
     Route: 048

REACTIONS (6)
  - Drug interaction [Recovered/Resolved]
  - Drug-induced liver injury [Recovered/Resolved]
  - Hepatic cirrhosis [Recovered/Resolved]
  - Hepatic encephalopathy [Recovered/Resolved]
  - Hepatic necrosis [Recovered/Resolved]
  - Hepatotoxicity [Recovered/Resolved]
